FAERS Safety Report 16776933 (Version 1)
Quarter: 2019Q4

REPORT INFORMATION
  Report Type: Spontaneous
  Country: US (occurrence: US)
  Receive Date: 20190905
  Receipt Date: 20190905
  Transmission Date: 20200122
  Serious: Yes (Other)
  Sender: FDA-Public Use
  Company Number: None

PATIENT
  Age: 71 Year
  Sex: Male

DRUGS (1)
  1. ZYTIGA [Suspect]
     Active Substance: ABIRATERONE ACETATE
     Indication: PROSTATE CANCER
     Route: 048
     Dates: start: 20190824

REACTIONS (6)
  - Amnesia [None]
  - Memory impairment [None]
  - Road traffic accident [None]
  - Rib fracture [None]
  - Flushing [None]
  - Fatigue [None]

NARRATIVE: CASE EVENT DATE: 20190713
